FAERS Safety Report 7634533-1 (Version None)
Quarter: 2011Q3

REPORT INFORMATION
  Report Type: 
  Country: None (occurrence: None)
  Receive Date: 20110725
  Receipt Date: 20110712
  Transmission Date: 20111222
  Serious: Yes (Other)
  Sender: FDA-Public Use
  Company Number: US-ELI_LILLY_AND_COMPANY-US201106009009

PATIENT
  Sex: Female

DRUGS (2)
  1. FORTEO [Suspect]
     Dosage: 20 UG, QD
  2. FORTEO [Suspect]
     Indication: OSTEOPOROSIS
     Dosage: 20 UG, QD
     Dates: start: 20110411

REACTIONS (16)
  - TREMOR [None]
  - DYSPNOEA [None]
  - CELL DEATH [None]
  - CHRONIC OBSTRUCTIVE PULMONARY DISEASE [None]
  - EMPHYSEMA [None]
  - DIZZINESS [None]
  - PAIN IN EXTREMITY [None]
  - JOINT DISLOCATION [None]
  - JOINT CREPITATION [None]
  - THINKING ABNORMAL [None]
  - HYPERHIDROSIS [None]
  - OEDEMA PERIPHERAL [None]
  - HEART RATE INCREASED [None]
  - PANIC REACTION [None]
  - ASTHENIA [None]
  - MUSCULOSKELETAL STIFFNESS [None]
